FAERS Safety Report 7550499-7 (Version None)
Quarter: 2011Q2

REPORT INFORMATION
  Report Type: 
  Country: None (occurrence: None)
  Receive Date: 20110615
  Receipt Date: 20110602
  Transmission Date: 20111010
  Serious: Yes (Hospitalization)
  Sender: FDA-Public Use
  Company Number: US-ELI_LILLY_AND_COMPANY-US201105001904

PATIENT
  Age: 86 Year
  Sex: Male

DRUGS (3)
  1. ZYPREXA [Suspect]
     Dosage: 2.5 MG, QD
  2. FELODIPINE [Concomitant]
     Dosage: UNK, UNKNOWN
  3. DONEPEZIL HCL [Concomitant]
     Dosage: UNK, UNKNOWN

REACTIONS (4)
  - RENAL FAILURE ACUTE [None]
  - URINARY RETENTION [None]
  - BENIGN PROSTATIC HYPERPLASIA [None]
  - ANURIA [None]
